FAERS Safety Report 14588627 (Version 1)
Quarter: 2018Q1

REPORT INFORMATION
  Report Type: Spontaneous
  Country: US (occurrence: US)
  Receive Date: 20180301
  Receipt Date: 20180301
  Transmission Date: 20180509
  Serious: No
  Sender: FDA-Public Use
  Company Number: US-GLAXOSMITHKLINE-US2018GSK033096

PATIENT
  Age: 78 Year
  Sex: Male
  Weight: 81.65 kg

DRUGS (4)
  1. COREG [Suspect]
     Active Substance: CARVEDILOL
  2. PRAVASTATIN TABLET [Suspect]
     Active Substance: PRAVASTATIN
  3. LOSARTAN. [Suspect]
     Active Substance: LOSARTAN
  4. AMIODARONE [Suspect]
     Active Substance: AMIODARONE
     Dosage: UNK

REACTIONS (2)
  - Blood pressure increased [Recovering/Resolving]
  - Feeling abnormal [Unknown]
